FAERS Safety Report 23574079 (Version 2)
Quarter: 2024Q2

REPORT INFORMATION
  Report Type: Report from Study
  Country: US (occurrence: US)
  Receive Date: 20240228
  Receipt Date: 20240419
  Transmission Date: 20240716
  Serious: Yes (Hospitalization, Other)
  Sender: FDA-Public Use
  Company Number: US-ABBVIE-5652362

PATIENT
  Age: 78 Year
  Sex: Male

DRUGS (2)
  1. VENCLEXTA [Suspect]
     Active Substance: VENETOCLAX
     Indication: B-cell small lymphocytic lymphoma
     Dosage: DOSE INCREASED
     Route: 048
     Dates: start: 202402
  2. VENCLEXTA [Suspect]
     Active Substance: VENETOCLAX
     Indication: B-cell small lymphocytic lymphoma
     Dosage: LAST ADMIN DATE: FEB 2024
     Route: 048
     Dates: start: 20240208

REACTIONS (12)
  - Blood uric acid increased [Unknown]
  - Asthenia [Unknown]
  - Oedema [Unknown]
  - Decreased appetite [Unknown]
  - Weight abnormal [Unknown]
  - Haemoglobin decreased [Unknown]
  - Fall [Unknown]
  - Limb discomfort [Unknown]
  - Dyspnoea [Unknown]
  - Impatience [Unknown]
  - Discomfort [Unknown]
  - Gait disturbance [Unknown]

NARRATIVE: CASE EVENT DATE: 20240201
